FAERS Safety Report 22366004 (Version 1)
Quarter: 2023Q2

REPORT INFORMATION
  Report Type: Spontaneous
  Country: US (occurrence: US)
  Receive Date: 20230525
  Receipt Date: 20230525
  Transmission Date: 20230722
  Serious: Yes (Congenital Anomaly, Other)
  Sender: FDA-Public Use
  Company Number: US-ViiV Healthcare Limited-US2023GSK072239

PATIENT

DRUGS (6)
  1. JULUCA [Suspect]
     Active Substance: DOLUTEGRAVIR SODIUM\RILPIVIRINE HYDROCHLORIDE
     Indication: HIV infection
     Dosage: UNK
     Route: 064
  2. SYMTUZA [Suspect]
     Active Substance: COBICISTAT\DARUNAVIR\EMTRICITABINE\TENOFOVIR ALAFENAMIDE
     Indication: HIV infection
     Dosage: UNK
     Route: 064
  3. ZIDOVUDINE [Concomitant]
     Active Substance: ZIDOVUDINE
     Indication: Antiretroviral therapy
     Dosage: UNK
  4. LAMIVUDINE [Concomitant]
     Active Substance: LAMIVUDINE
     Indication: Antiretroviral therapy
     Dosage: UNK
  5. NEVIRAPINE [Concomitant]
     Active Substance: NEVIRAPINE
     Indication: Antiretroviral therapy
     Dosage: UNK
  6. RALTEGRAVIR [Concomitant]
     Active Substance: RALTEGRAVIR
     Indication: Antiretroviral therapy
     Dosage: UNK

REACTIONS (3)
  - Congenital HIV infection [Unknown]
  - Human immunodeficiency virus transmission [Unknown]
  - Foetal exposure during pregnancy [Unknown]
